FAERS Safety Report 11266747 (Version 2)
Quarter: 2015Q3

REPORT INFORMATION
  Report Type: Spontaneous
  Country: DE (occurrence: DE)
  Receive Date: 20150713
  Receipt Date: 20150714
  Transmission Date: 20151125
  Serious: Yes (Life-Threatening, Hospitalization)
  Sender: FDA-Public Use
  Company Number: US-ASTRAZENECA-2013SE78128

PATIENT
  Age: 40 Year
  Sex: Female
  Weight: 55 kg

DRUGS (4)
  1. INSULIN [Concomitant]
     Active Substance: INSULIN NOS
  2. FORXIGA [Suspect]
     Active Substance: DAPAGLIFLOZIN
     Indication: TYPE 1 DIABETES MELLITUS
     Dosage: UNK
     Route: 048
  3. NOVORAPID [Concomitant]
     Active Substance: INSULIN ASPART
     Dosage: 1 DF: 4 IU IN MORNING AND 6IU IN NOON AND 5IU IN EVE
  4. LEVEMIR [Concomitant]
     Active Substance: INSULIN DETEMIR
     Dosage: 1 DF: 5 IU IN MORNING AND 10IU IN NIGHT

REACTIONS (7)
  - Ketoacidosis [Recovering/Resolving]
  - Vaginal infection [Unknown]
  - Off label use [Unknown]
  - Dehydration [Unknown]
  - Product use issue [Unknown]
  - Acute kidney injury [Unknown]
  - Sinusitis [Not Recovered/Not Resolved]
